FAERS Safety Report 7177514-7 (Version None)
Quarter: 2010Q4

REPORT INFORMATION
  Report Type: 
  Country: None (occurrence: None)
  Receive Date: 20101220
  Receipt Date: 20100616
  Transmission Date: 20110411
  Serious: Yes (Other)
  Sender: FDA-Public Use
  Company Number: PHFR2010GB05795

PATIENT
  Sex: Male

DRUGS (5)
  1. CLOZARIL [Suspect]
     Indication: SCHIZOPHRENIA
     Dosage: 550 MG, UNK
     Dates: start: 20081027
  2. AMISULPRIDE [Concomitant]
  3. METFORMIN HCL [Concomitant]
  4. HYOSCINE HBR HYT [Concomitant]
  5. LANSOPRAZOLE [Concomitant]

REACTIONS (1)
  - HEPATITIS C [None]
